FAERS Safety Report 10953280 (Version 3)
Quarter: 2015Q2

REPORT INFORMATION
  Report Type: Spontaneous
  Country: CN (occurrence: None)
  Receive Date: 20150323
  Receipt Date: 20150415
  Transmission Date: 20150821
  Serious: Yes (Other)
  Sender: FDA-Public Use
  Company Number: CN-2015VAL000206

PATIENT
  Age: 60 Year
  Sex: Male

DRUGS (1)
  1. LOTENSIN [Suspect]
     Active Substance: BENAZEPRIL HYDROCHLORIDE
     Indication: HYPERTENSION
     Dosage: 1 DF, 10MG
     Route: 048

REACTIONS (2)
  - Drug ineffective [None]
  - Blood pressure increased [None]
